FAERS Safety Report 19990525 (Version 1)
Quarter: 2021Q4

REPORT INFORMATION
  Report Type: Spontaneous
  Country: US (occurrence: US)
  Receive Date: 20211025
  Receipt Date: 20211025
  Transmission Date: 20220303
  Serious: Yes (Hospitalization)
  Sender: FDA-Public Use
  Company Number: US-CADILA HEALTHCARE LIMITED-US-ZYDUS-070705

PATIENT

DRUGS (2)
  1. NITROGLYCERIN [Interacting]
     Active Substance: NITROGLYCERIN
     Indication: Hypertension
     Dosage: UNK
     Route: 065
  2. HYDRALAZINE [Interacting]
     Active Substance: HYDRALAZINE HYDROCHLORIDE
     Indication: Hypertension
     Dosage: UNK
     Route: 065

REACTIONS (2)
  - Drug interaction [Unknown]
  - Drug resistance [Unknown]
